FAERS Safety Report 12646783 (Version 7)
Quarter: 2017Q2

REPORT INFORMATION
  Report Type: Report from Study
  Country: CA (occurrence: CA)
  Receive Date: 20160812
  Receipt Date: 20170607
  Transmission Date: 20170830
  Serious: Yes (Other)
  Sender: FDA-Public Use
  Company Number: CA-BRISTOL-MYERS SQUIBB COMPANY-BMS-2016-065508

PATIENT
  Age: 56 Year
  Sex: Female

DRUGS (1)
  1. ABATACEPT [Suspect]
     Active Substance: ABATACEPT
     Indication: RHEUMATOID ARTHRITIS
     Dosage: 125 MG/ML, UNK, QS
     Route: 058
     Dates: start: 20151019

REACTIONS (9)
  - Urinary tract infection [Recovered/Resolved]
  - Plantar fasciitis [Unknown]
  - Tongue disorder [Recovering/Resolving]
  - Skin lesion [Recovering/Resolving]
  - Cervical dysplasia [Unknown]
  - Lower respiratory tract infection [Recovered/Resolved]
  - Bacterial infection [Recovered/Resolved]
  - Dermatitis [Not Recovered/Not Resolved]
  - Sinusitis [Recovered/Resolved]

NARRATIVE: CASE EVENT DATE: 20160218
